FAERS Safety Report 5180217-1 (Version None)
Quarter: 2006Q4

REPORT INFORMATION
  Report Type: 
  Country: None (occurrence: None)
  Receive Date: 20061219
  Receipt Date: 20060915
  Transmission Date: 20070319
  Serious: No
  Sender: FDA-Public Use
  Company Number: US-AMGEN-KDL193919

PATIENT
  Sex: Male
  Weight: 104.4 kg

DRUGS (1)
  1. ENBREL [Suspect]
     Indication: PSORIASIS
     Route: 058
     Dates: start: 20060306

REACTIONS (3)
  - INJECTION SITE PAIN [None]
  - PYREXIA [None]
  - URTICARIA [None]
